FAERS Safety Report 14893308 (Version 1)
Quarter: 2018Q2

REPORT INFORMATION
  Report Type: Spontaneous
  Country: US (occurrence: US)
  Receive Date: 20180426
  Receipt Date: 20180426
  Transmission Date: 20180711
  Serious: No
  Sender: FDA-Public Use
  Company Number: None

PATIENT
  Age: 55 Year
  Sex: Female
  Weight: 50.85 kg

DRUGS (2)
  1. GLATIRAMER [Suspect]
     Active Substance: GLATIRAMER
     Indication: MULTIPLE SCLEROSIS
     Dosage: ?          OTHER FREQUENCY:THREE TIMES A WEEK;?
     Route: 030
  2. GLATIRAMER [Concomitant]
     Active Substance: GLATIRAMER
     Dates: start: 20171218, end: 20180117

REACTIONS (5)
  - Balance disorder [None]
  - Vomiting [None]
  - Dizziness [None]
  - Dyspnoea [None]
  - Abdominal discomfort [None]

NARRATIVE: CASE EVENT DATE: 20180111
